FAERS Safety Report 6702002-9 (Version None)
Quarter: 2010Q2

REPORT INFORMATION
  Report Type: 
  Country: None (occurrence: None)
  Receive Date: 20100429
  Receipt Date: 20100421
  Transmission Date: 20101027
  Serious: Yes (Other)
  Sender: FDA-Public Use
  Company Number: JP-ROCHE-699512

PATIENT
  Sex: Male

DRUGS (1)
  1. CAPECITABINE [Suspect]
     Indication: COLON CANCER
     Dosage: DRUG: XELODA 300
     Route: 048
     Dates: start: 20090714, end: 20090714

REACTIONS (1)
  - INTESTINAL OBSTRUCTION [None]
